FAERS Safety Report 6368185-8 (Version None)
Quarter: 2009Q3

REPORT INFORMATION
  Report Type: 
  Country: None (occurrence: None)
  Receive Date: 20090922
  Receipt Date: 20090911
  Transmission Date: 20100115
  Serious: Yes (Other)
  Sender: FDA-Public Use
  Company Number: US-NOVOPROD-291616

PATIENT
  Age: 11 Year
  Sex: Male

DRUGS (2)
  1. NORDITROPIN [Suspect]
     Indication: BODY HEIGHT BELOW NORMAL
  2. METFORMIN HCL [Concomitant]

REACTIONS (1)
  - PITUITARY TUMOUR BENIGN [None]
